FAERS Safety Report 23244428 (Version 2)
Quarter: 2023Q4

REPORT INFORMATION
  Report Type: Spontaneous
  Country: US (occurrence: None)
  Receive Date: 20231130
  Receipt Date: 20231221
  Transmission Date: 20240110
  Serious: No
  Sender: FDA-Public Use
  Company Number: US-ROCHE-3466914

PATIENT
  Age: 47 Year
  Sex: Male
  Weight: 110.78 kg

DRUGS (8)
  1. OCREVUS [Suspect]
     Active Substance: OCRELIZUMAB
     Indication: Relapsing-remitting multiple sclerosis
     Dosage: STARTED ROUGHLY ABOUT 6 YEARS AGO, AND THEN HE SAID //2017. ?STANDARD DOSE.  LAST DOSE OF OCREVUS ON
     Route: 042
     Dates: start: 2017
  2. BUPRENORPHINE [Suspect]
     Active Substance: BUPRENORPHINE
     Indication: Pain
     Dosage: STARTED AFTER OCREVUS ON UNKNOWN DATE AT EITHER 2MG OR 5 MG
     Route: 065
  3. BUPRENORPHINE [Suspect]
     Active Substance: BUPRENORPHINE
     Dosage: START DATE UNKNOWN, BUT AFTER OCREVUS. INCREASED SLOWLY TO UNKNOWN?DOSES AND UNKNOWN IF HE STOPPED
     Route: 065
  4. EVUSHELD [Concomitant]
     Active Substance: CILGAVIMAB\TIXAGEVIMAB
     Indication: COVID-19
     Dosage: GIVEN OVER 1 YEAR AGO. ONE TIME DOSE.
     Route: 030
  5. MODAFINIL [Concomitant]
     Active Substance: MODAFINIL
     Dosage: PROBLEMS WITH MEMORY?STARTED 3 YEARS AGO. TOOK 1 PILL ONCE A DAY
     Route: 048
  6. MODAFINIL [Concomitant]
     Active Substance: MODAFINIL
     Dosage: START DATE UNKNOWN. TAKES 2 PILLS ONCE A DAY
     Route: 048
  7. MODERNA COVID-19 VACCINE [Concomitant]
     Active Substance: ELASOMERAN
     Indication: COVID-19
     Dosage: ONE TIME DOSE
     Route: 030
     Dates: start: 20210322, end: 20210322
  8. MODERNA COVID-19 VACCINE [Concomitant]
     Active Substance: ELASOMERAN
     Dosage: ONE TIME DOSE
     Route: 030
     Dates: start: 20210419, end: 20210419

REACTIONS (7)
  - COVID-19 [Not Recovered/Not Resolved]
  - Memory impairment [Not Recovered/Not Resolved]
  - Brain fog [Not Recovered/Not Resolved]
  - Fatigue [Not Recovered/Not Resolved]
  - Nasopharyngitis [Unknown]
  - Pain [Not Recovered/Not Resolved]
  - Drug hypersensitivity [Recovered/Resolved]

NARRATIVE: CASE EVENT DATE: 20231026
